FAERS Safety Report 20674909 (Version 3)
Quarter: 2022Q4

REPORT INFORMATION
  Report Type: Report from Study
  Country: GB (occurrence: GB)
  Receive Date: 20220405
  Receipt Date: 20221020
  Transmission Date: 20230113
  Serious: Yes (Other)
  Sender: FDA-Public Use
  Company Number: GB-SA-2017SA011670

PATIENT
  Age: 36 Year
  Sex: Female
  Weight: 69.8 kg

DRUGS (2)
  1. ALEMTUZUMAB [Suspect]
     Active Substance: ALEMTUZUMAB
     Indication: Relapsing multiple sclerosis
     Dosage: 12 MG,QD
     Route: 041
     Dates: start: 20160815, end: 20160819
  2. ALEMTUZUMAB [Suspect]
     Active Substance: ALEMTUZUMAB
     Dosage: 12 MG, QD
     Route: 041
     Dates: start: 20170814

REACTIONS (13)
  - Basedow^s disease [Recovered/Resolved]
  - Hyperthyroidism [Recovered/Resolved]
  - Drug eruption [Recovered/Resolved]
  - Hypothyroidism [Recovered/Resolved]
  - Autoimmune hypothyroidism [Recovering/Resolving]
  - Lymphopenia [Recovered/Resolved]
  - Blood creatine increased [Recovered/Resolved]
  - Streptococcal urinary tract infection [Recovered/Resolved]
  - Vulvovaginal candidiasis [Recovered/Resolved]
  - Sinusitis [Recovered/Resolved]
  - Vulvar melanosis [Recovered/Resolved]
  - Candida infection [Not Recovered/Not Resolved]
  - Fatigue [Recovered/Resolved]

NARRATIVE: CASE EVENT DATE: 20160818
